FAERS Safety Report 10051567 (Version 1)
Quarter: 2014Q2

REPORT INFORMATION
  Report Type: Spontaneous
  Country: US (occurrence: US)
  Receive Date: 20140401
  Receipt Date: 20140401
  Transmission Date: 20141212
  Serious: Yes (Other)
  Sender: FDA-Public Use
  Company Number: GXBR2014US000973

PATIENT
  Age: 66 Year
  Sex: Male
  Weight: 63.49 kg

DRUGS (2)
  1. CLOTRIMAZOLE AND BETAMETHASONE DIPROPIONATE [Suspect]
     Indication: EAR INFECTION FUNGAL
     Dosage: 4 GTT, BID
     Route: 001
     Dates: start: 20130124
  2. THYROID PREPARATIONS [Concomitant]
     Indication: THYROID DISORDER
     Dosage: 0.50 MG, QD
     Route: 048

REACTIONS (5)
  - Tinnitus [Not Recovered/Not Resolved]
  - Abnormal loss of weight [Unknown]
  - Headache [Not Recovered/Not Resolved]
  - Insomnia [Not Recovered/Not Resolved]
  - Stress [Not Recovered/Not Resolved]
